FAERS Safety Report 9016117 (Version 1)
Quarter: 2013Q1

REPORT INFORMATION
  Report Type: Spontaneous
  Country: US (occurrence: US)
  Receive Date: 20130116
  Receipt Date: 20130116
  Transmission Date: 20140127
  Serious: Yes (Hospitalization)
  Sender: FDA-Public Use
  Company Number: US-MYLANLABS-2013S1000439

PATIENT
  Age: 29 Year
  Sex: Female

DRUGS (7)
  1. BUPROPION HYDROCHLORIDE [Suspect]
     Indication: OVERDOSE
     Route: 065
  2. GABAPENTIN [Suspect]
     Indication: OVERDOSE
     Dosage: 2100MG
     Route: 048
  3. GABAPENTIN [Suspect]
     Indication: MOVEMENT DISORDER
     Dosage: 2100MG
     Route: 048
  4. GABAPENTIN [Suspect]
     Indication: OVERDOSE
     Dosage: ONCE DAILY
     Route: 065
  5. GABAPENTIN [Suspect]
     Indication: MOVEMENT DISORDER
     Dosage: ONCE DAILY
     Route: 065
  6. AMFETAMINE [Concomitant]
     Indication: ATTENTION DEFICIT/HYPERACTIVITY DISORDER
     Route: 065
  7. DEXAMFETAMINE [Concomitant]
     Indication: ATTENTION DEFICIT/HYPERACTIVITY DISORDER
     Route: 065

REACTIONS (7)
  - Overdose [Recovering/Resolving]
  - Electroencephalogram abnormal [Recovered/Resolved]
  - Grand mal convulsion [Recovered/Resolved]
  - Sinus tachycardia [Unknown]
  - Electrocardiogram QT prolonged [Unknown]
  - Cardiogenic shock [Recovering/Resolving]
  - Metabolic acidosis [Unknown]
